FAERS Safety Report 7171055-9 (Version None)
Quarter: 2010Q4

REPORT INFORMATION
  Report Type: 
  Country: None (occurrence: None)
  Receive Date: 20101217
  Receipt Date: 20101208
  Transmission Date: 20110411
  Serious: Yes (Hospitalization)
  Sender: FDA-Public Use
  Company Number: GXKR2010GB13956

PATIENT
  Age: 69 Year
  Sex: Male
  Weight: 96 kg

DRUGS (9)
  1. GABAPENTIN [Suspect]
     Indication: MYELITIS TRANSVERSE
     Dosage: 200 MG, TID
     Route: 048
     Dates: start: 20100705, end: 20101115
  2. GABAPENTIN [Suspect]
     Indication: NEURALGIA
  3. ACETYLSALICYLIC ACID [Concomitant]
     Indication: MYOCARDIAL ISCHAEMIA
     Dosage: 75 MG, QD
     Route: 048
     Dates: start: 20071204
  4. ATENOLOL [Concomitant]
     Indication: MYOCARDIAL ISCHAEMIA
     Dosage: 25 MG, QD
     Route: 048
     Dates: start: 19930415
  5. BACLOFEN [Concomitant]
     Indication: MYELITIS TRANSVERSE
     Dosage: 10 MG, TID
     Route: 048
     Dates: start: 20070615
  6. CO-CODAMOL [Concomitant]
     Indication: MYELITIS TRANSVERSE
     Dosage: UNK
     Route: 048
     Dates: start: 20101015
  7. EZETIMIBE [Concomitant]
     Dosage: 10 MG, QD
     Route: 048
     Dates: start: 20090420
  8. FLUCLOXACILLIN [Concomitant]
     Indication: CELLULITIS
     Dosage: 500 MG, QID
     Route: 048
     Dates: start: 20101018, end: 20101025
  9. SIMVASTATIN [Concomitant]
     Indication: MYOCARDIAL ISCHAEMIA
     Dosage: 40 MG, QD
     Route: 048
     Dates: start: 20090420

REACTIONS (1)
  - HAEMARTHROSIS [None]
